FAERS Safety Report 5412260-9 (Version None)
Quarter: 2007Q3

REPORT INFORMATION
  Report Type: 
  Country: None (occurrence: None)
  Receive Date: 20070809
  Receipt Date: 20070803
  Transmission Date: 20080115
  Serious: Yes (Hospitalization)
  Sender: FDA-Public Use
  Company Number: 163-20785-07050270

PATIENT
  Age: 80 Year
  Sex: Male

DRUGS (9)
  1. THALOMID [Suspect]
     Indication: MULTIPLE MYELOMA
     Dosage: 100 MG, 2 IN 1 D, ORAL
     Route: 048
     Dates: start: 20070410
  2. AVANDIA [Concomitant]
  3. CASODIX (BICALUTAMIDE) [Concomitant]
  4. DOXAZOSIN (DOXAZOSIN) [Concomitant]
  5. FOSAMAX [Concomitant]
  6. QUINAPRIL HCL [Concomitant]
  7. DOCUSATE (DOCUSATE) [Concomitant]
  8. SENNA (SENNA) [Concomitant]
  9. PERCOCET [Concomitant]

REACTIONS (2)
  - FALL [None]
  - HIP FRACTURE [None]
